FAERS Safety Report 22047015 (Version 2)
Quarter: 2023Q1

REPORT INFORMATION
  Report Type: Report from Study
  Country: US (occurrence: US)
  Receive Date: 20230301
  Receipt Date: 20230328
  Transmission Date: 20230418
  Serious: No
  Sender: FDA-Public Use
  Company Number: US-REGENERON PHARMACEUTICALS, INC.-2023-033674

PATIENT
  Age: 2 Year
  Sex: Male

DRUGS (20)
  1. DUPILUMAB [Suspect]
     Active Substance: DUPILUMAB
     Indication: Eosinophilic oesophagitis
     Dosage: UNK, SINGLE, LOADING DOSE
     Route: 058
     Dates: start: 20210824, end: 20210824
  2. DUPILUMAB [Suspect]
     Active Substance: DUPILUMAB
     Indication: Eosinophilic oesophagitis
     Dosage: UNK, SINGLE, LOADING DOSE
     Route: 058
     Dates: start: 20210824, end: 20210824
  3. INVESTIGATIONAL PRODUCT [Suspect]
     Active Substance: INVESTIGATIONAL PRODUCT
     Indication: Eosinophilic oesophagitis
     Dosage: UNK, SINGLE, LOADING DOSE
     Route: 058
     Dates: start: 20210824, end: 20210824
  4. PLACEBO [Suspect]
     Active Substance: UNSPECIFIED INGREDIENT
     Indication: Eosinophilic oesophagitis
     Dosage: UNK, SINGLE, LOADING DOSE
     Route: 058
     Dates: start: 20210824, end: 20210824
  5. DUPILUMAB [Suspect]
     Active Substance: DUPILUMAB
     Dosage: UNK UNK, Q2W MAINTENANCE DOSE
     Route: 058
     Dates: start: 20210909, end: 20230124
  6. DUPILUMAB [Suspect]
     Active Substance: DUPILUMAB
     Dosage: UNK UNK, Q2W MAINTENANCE DOSE
     Route: 058
     Dates: start: 20210909, end: 20230124
  7. INVESTIGATIONAL PRODUCT [Suspect]
     Active Substance: INVESTIGATIONAL PRODUCT
     Dosage: UNK UNK, Q2W MAINTENANCE DOSE
     Route: 058
     Dates: start: 20210909, end: 20230124
  8. PLACEBO [Suspect]
     Active Substance: UNSPECIFIED INGREDIENT
     Dosage: UNK UNK, Q2W MAINTENANCE DOSE
     Route: 058
     Dates: start: 20210909, end: 20230124
  9. DUPILUMAB [Suspect]
     Active Substance: DUPILUMAB
     Dosage: UNK , 1X LAST DOSE PRIOR TO THE EVENT
     Route: 058
     Dates: start: 20230206, end: 20230206
  10. DUPILUMAB [Suspect]
     Active Substance: DUPILUMAB
     Dosage: UNK , 1X LAST DOSE PRIOR TO THE EVENT
     Route: 058
     Dates: start: 20230206, end: 20230206
  11. INVESTIGATIONAL PRODUCT [Suspect]
     Active Substance: INVESTIGATIONAL PRODUCT
     Dosage: UNK , 1X LAST DOSE PRIOR TO THE EVENT
     Route: 058
     Dates: start: 20230206, end: 20230206
  12. PLACEBO [Suspect]
     Active Substance: UNSPECIFIED INGREDIENT
     Dosage: UNK , 1X LAST DOSE PRIOR TO THE EVENT
     Route: 058
     Dates: start: 20230206, end: 20230206
  13. AQUAPHOR (XIPAMIDE) [Concomitant]
     Active Substance: XIPAMIDE
     Indication: Dermatitis atopic
     Dosage: UNK
  14. BETAMETHASONE [Concomitant]
     Active Substance: BETAMETHASONE
     Indication: Dermatitis atopic
  15. EPINEPHRINE [Concomitant]
     Active Substance: EPINEPHRINE
     Indication: Anaphylactic reaction
     Dosage: UNK
  16. CYPROHEPTADINE [Concomitant]
     Active Substance: CYPROHEPTADINE
     Indication: Nausea
     Dosage: UNK
  17. ALBUTEROL SULFATE [Concomitant]
     Active Substance: ALBUTEROL SULFATE
     Indication: Bronchial hyperreactivity
     Dosage: UNK
  18. ALBUTEROL SULFATE [Concomitant]
     Active Substance: ALBUTEROL SULFATE
     Indication: Asthma
  19. FLOVENT [Concomitant]
     Active Substance: FLUTICASONE PROPIONATE
     Indication: Asthma
     Dosage: UNK
  20. TYLENOL [Concomitant]
     Active Substance: ACETAMINOPHEN
     Indication: Pyrexia

REACTIONS (1)
  - Anaphylactic reaction [Recovered/Resolved]

NARRATIVE: CASE EVENT DATE: 20230217
